FAERS Safety Report 5754943-7 (Version None)
Quarter: 2008Q2

REPORT INFORMATION
  Report Type: 
  Country: None (occurrence: None)
  Receive Date: 20080602
  Receipt Date: 20080528
  Transmission Date: 20081010
  Serious: Yes (Hospitalization, Other)
  Sender: FDA-Public Use
  Company Number: FR-BRISTOL-MYERS SQUIBB COMPANY-13677968

PATIENT
  Age: 76 Year
  Sex: Female
  Weight: 75 kg

DRUGS (10)
  1. COUMADIN [Suspect]
     Indication: CARDIAC VALVE PROSTHESIS USER
     Route: 048
     Dates: start: 20060811, end: 20080324
  2. KARDEGIC [Suspect]
     Indication: THROMBOSIS
     Dates: start: 20060904, end: 20080324
  3. LASILIX [Suspect]
  4. CIPROFLOXACIN HCL [Suspect]
     Dates: end: 20080324
  5. LEVOTHYROXINE SODIUM [Suspect]
     Dates: end: 20080324
  6. DIGOXIN [Suspect]
     Dates: end: 20080324
  7. INNOHEP [Concomitant]
     Dates: start: 20060915
  8. PREVISCAN [Concomitant]
  9. NEXIUM [Concomitant]
  10. FORADIL [Concomitant]

REACTIONS (9)
  - BRADYCARDIA [None]
  - ELECTROCARDIOGRAM QT PROLONGED [None]
  - HAEMATURIA [None]
  - HAEMOPTYSIS [None]
  - HYPOKALAEMIA [None]
  - LOSS OF CONSCIOUSNESS [None]
  - MALAISE [None]
  - OVERDOSE [None]
  - TORSADE DE POINTES [None]
